FAERS Safety Report 10073724 (Version 1)
Quarter: 2014Q2

REPORT INFORMATION
  Report Type: Spontaneous
  Country: US (occurrence: US)
  Receive Date: 20140411
  Receipt Date: 20140411
  Transmission Date: 20141212
  Serious: No
  Sender: FDA-Public Use
  Company Number: US-009507513-1404USA003890

PATIENT
  Sex: 0

DRUGS (1)
  1. A+D MEDICATED OINTMENT [Suspect]
     Indication: DERMATITIS DIAPER
     Dosage: UNK, UNKNOWN
     Route: 061

REACTIONS (2)
  - Dermatitis diaper [Unknown]
  - Application site pain [Unknown]
